FAERS Safety Report 9243696 (Version 1)
Quarter: 2013Q1

REPORT INFORMATION
  Report Type: Spontaneous
  Country: US (occurrence: None)
  Receive Date: 20121123
  Receipt Date: 20121123
  Transmission Date: 20140127
  Serious: No
  Sender: FDA-Public Use
  Company Number: 357452

PATIENT
  Age: 37 Year
  Sex: Female

DRUGS (1)
  1. VICTOZA [Suspect]
     Indication: INSULIN RESISTANT DIABETES
     Route: 058

REACTIONS (3)
  - Blood glucose decreased [None]
  - Nausea [None]
  - Headache [None]
